FAERS Safety Report 6428892-5 (Version None)
Quarter: 2009Q4

REPORT INFORMATION
  Report Type: 
  Country: None (occurrence: None)
  Receive Date: 20091105
  Receipt Date: 20091029
  Transmission Date: 20100525
  Serious: Yes (Hospitalization)
  Sender: FDA-Public Use
  Company Number: US-B.I. PHARMACEUTICALS,INC./RIDGEFIELD-2009-BP-12598BP

PATIENT
  Age: 95 Year
  Sex: Male

DRUGS (10)
  1. ZANTAC 150 [Suspect]
     Indication: GASTROOESOPHAGEAL REFLUX DISEASE
     Dosage: 150 MG
     Route: 048
     Dates: start: 20091028
  2. ZANTAC 150 [Suspect]
     Dosage: 150 MG
     Route: 048
     Dates: start: 20090928, end: 20091003
  3. ZANTAC 150 [Suspect]
     Dosage: 150 MG
     Route: 048
     Dates: start: 20080701, end: 20090701
  4. ATENOLOL [Concomitant]
     Indication: HYPERTENSION
  5. NAMENDA [Concomitant]
     Indication: DEMENTIA
  6. SYNTHROID [Concomitant]
     Indication: HYPOTHYROIDISM
  7. PLAVIX [Concomitant]
     Indication: MYOCARDIAL INFARCTION
  8. AMIODARONE [Concomitant]
     Indication: HYPERTENSION
  9. ISOSORBIDE [Concomitant]
     Indication: HYPERTENSION
  10. AVAPRO [Concomitant]
     Indication: HYPERTENSION

REACTIONS (4)
  - BLOOD PRESSURE INCREASED [None]
  - DELIRIUM [None]
  - DYSPHAGIA [None]
  - HALLUCINATION, VISUAL [None]
